FAERS Safety Report 7348943-3 (Version None)
Quarter: 2011Q1

REPORT INFORMATION
  Report Type: 
  Country: None (occurrence: None)
  Receive Date: 20110314
  Receipt Date: 20110303
  Transmission Date: 20110831
  Serious: No
  Sender: FDA-Public Use
  Company Number: US-ROXANE LABORATORIES, INC.-2011-RO-00278RO

PATIENT
  Sex: Female

DRUGS (4)
  1. ZITHROMAX [Concomitant]
     Indication: BRONCHITIS
  2. COUGH SYRUP [Concomitant]
     Indication: BRONCHITIS
  3. PREDNISONE [Suspect]
     Indication: BRONCHITIS
     Dates: start: 20110204
  4. SABRIL [Suspect]

REACTIONS (2)
  - SOMNOLENCE [None]
  - FATIGUE [None]
